FAERS Safety Report 8172943-7 (Version None)
Quarter: 2012Q1

REPORT INFORMATION
  Report Type: 
  Country: None (occurrence: None)
  Receive Date: 20120223
  Receipt Date: 20120216
  Transmission Date: 20120608
  Serious: Yes (Death)
  Sender: FDA-Public Use
  Company Number: DKLU1076952

PATIENT
  Age: 4 Year
  Sex: Male
  Weight: 19.68 kg

DRUGS (1)
  1. SABRIL [Suspect]
     Indication: CONGENITAL ANOMALY
     Dosage: 750 MG MILLIGRAM(S), 2 IN 1 D
     Dates: start: 20101005, end: 20120119

REACTIONS (1)
  - DEATH [None]
